FAERS Safety Report 10678403 (Version 2)
Quarter: 2015Q1

REPORT INFORMATION
  Report Type: Spontaneous
  Country: US (occurrence: None)
  Receive Date: 20141223
  Receipt Date: 20150108
  Transmission Date: 20150720
  Serious: Yes (Other)
  Sender: FDA-Public Use
  Company Number: 201412127

PATIENT
  Age: 47 Year
  Sex: Male

DRUGS (3)
  1. XIAFLEX [Suspect]
     Active Substance: COLLAGENASE CLOSTRIDIUM HISTOLYTICUM
     Indication: PEYRONIE^S DISEASE
     Dosage: 1 IN 1 D INTRALESIONAL, 0.58MG.
     Dates: start: 20141211, end: 20141211
  2. LISINOPRIL. [Concomitant]
     Active Substance: LISINOPRIL
  3. HYDROCHLOROTHIAZIDE. [Concomitant]
     Active Substance: HYDROCHLOROTHIAZIDE

REACTIONS (6)
  - Injection site bruising [None]
  - Penile pain [None]
  - Injection site haematoma [None]
  - Fracture of penis [None]
  - Injection site swelling [None]
  - Penile swelling [None]

NARRATIVE: CASE EVENT DATE: 20141217
